FAERS Safety Report 10137814 (Version 4)
Quarter: 2014Q4

REPORT INFORMATION
  Report Type: Report from Study
  Country: CN (occurrence: CN)
  Receive Date: 20140429
  Receipt Date: 20141029
  Transmission Date: 20150528
  Serious: Yes (Hospitalization)
  Sender: FDA-Public Use
  Company Number: CN-SA-2014SA053059

PATIENT
  Age: 27 Year
  Sex: Female
  Weight: 51 kg

DRUGS (10)
  1. AFLIBERCEPT [Suspect]
     Active Substance: AFLIBERCEPT
     Indication: NEOPLASM
     Route: 042
     Dates: start: 20140322, end: 20140322
  2. IRINOTECAN [Suspect]
     Active Substance: IRINOTECAN
     Indication: NEOPLASM
     Route: 042
     Dates: start: 20131203, end: 20131203
  3. 5-FU [Suspect]
     Active Substance: FLUOROURACIL
     Indication: NEOPLASM
     Route: 041
     Dates: start: 20131203, end: 20131205
  4. LEUCOVORIN [Suspect]
     Active Substance: LEUCOVORIN
     Indication: NEOPLASM
     Route: 042
     Dates: start: 20131203, end: 20131203
  5. AFLIBERCEPT [Suspect]
     Active Substance: AFLIBERCEPT
     Indication: NEOPLASM
     Route: 042
     Dates: start: 20131203, end: 20131203
  6. IRINOTECAN [Suspect]
     Active Substance: IRINOTECAN
     Indication: NEOPLASM
     Route: 042
     Dates: start: 20140322, end: 20140322
  7. 5-FU [Suspect]
     Active Substance: FLUOROURACIL
     Indication: NEOPLASM
     Route: 040
     Dates: start: 20140322, end: 20140322
  8. 5-FU [Suspect]
     Active Substance: FLUOROURACIL
     Indication: NEOPLASM
     Route: 042
     Dates: start: 20140322, end: 20140322
  9. 5-FU [Suspect]
     Active Substance: FLUOROURACIL
     Indication: NEOPLASM
     Route: 040
     Dates: start: 20131203, end: 20131203
  10. LEUCOVORIN [Suspect]
     Active Substance: LEUCOVORIN
     Indication: NEOPLASM
     Route: 042
     Dates: start: 20140322, end: 20140322

REACTIONS (1)
  - Haemorrhoids [Not Recovered/Not Resolved]

NARRATIVE: CASE EVENT DATE: 20140322
